FAERS Safety Report 5875496-9 (Version None)
Quarter: 2008Q3

REPORT INFORMATION
  Report Type: 
  Country: None (occurrence: None)
  Receive Date: 20080909
  Receipt Date: 20080903
  Transmission Date: 20090109
  Serious: Yes (Hospitalization)
  Sender: FDA-Public Use
  Company Number: FI-ABBOTT-08P-055-0474078-00

PATIENT
  Age: 40 Year
  Sex: Female

DRUGS (4)
  1. SEVORANE LIQUID FOR INHALATION [Suspect]
     Indication: OVARIAN CYSTECTOMY
     Dosage: MAC 1-1.5 DURING ABOUT 1.5 HRS ANESTHESIA
     Dates: start: 20080826, end: 20080826
  2. ETORICOXIB [Suspect]
     Indication: ANAESTHETIC PREMEDICATION
     Dosage: SINGLE DOSE
     Dates: start: 20080826, end: 20080826
  3. ACETAMINOPHEN [Concomitant]
     Indication: PAIN
     Dosage: UP TO 4 TIMES PER DAY
  4. OXYGEN GAS [Concomitant]
     Indication: OVARIAN CYSTECTOMY
     Dates: start: 20080826, end: 20080826

REACTIONS (4)
  - FATIGUE [None]
  - LIVER FUNCTION TEST ABNORMAL [None]
  - MUSCULOSKELETAL CHEST PAIN [None]
  - NAUSEA [None]
